FAERS Safety Report 8481344-3 (Version None)
Quarter: 2012Q2

REPORT INFORMATION
  Report Type: 
  Country: None (occurrence: None)
  Receive Date: 20120626
  Receipt Date: 20120626
  Transmission Date: 20120825
  Serious: Yes (Other)
  Sender: FDA-Public Use
  Company Number: None

PATIENT
  Age: 74 Year
  Sex: Male

DRUGS (1)
  1. XELODA [Suspect]
     Dosage: 1500 MG BID ON DAYS OF RADIATION PO
     Route: 048
     Dates: start: 20120201

REACTIONS (1)
  - SKIN DISCOLOURATION [None]
